FAERS Safety Report 8917298 (Version 1)
Quarter: 2012Q4

REPORT INFORMATION
  Report Type: 
  Country: US (occurrence: US)
  Receive Date: 20121120
  Receipt Date: 20121120
  Transmission Date: 20130627
  Serious: Yes (Other)
  Sender: FDA-Public Use
  Company Number: US-ELI_LILLY_AND_COMPANY-US201211003725

PATIENT
  Age: 63 Year
  Sex: Male

DRUGS (2)
  1. CYMBALTA [Suspect]
     Indication: DEPRESSION
     Dosage: 60 mg, qd
  2. SEROQUEL [Concomitant]
     Dosage: UNK, unknown
     Route: 065

REACTIONS (3)
  - Oral mucosal exfoliation [Unknown]
  - Stomatitis [Unknown]
  - Insomnia [Not Recovered/Not Resolved]
